FAERS Safety Report 17451349 (Version 1)
Quarter: 2020Q1

REPORT INFORMATION
  Report Type: Spontaneous
  Country: US (occurrence: US)
  Receive Date: 20200223
  Receipt Date: 20200223
  Transmission Date: 20200409
  Serious: Yes (Disabling, Other)
  Sender: FDA-Public Use
  Company Number: None

PATIENT
  Age: 37 Year
  Sex: Female
  Weight: 55.8 kg

DRUGS (5)
  1. VOLTAREN [Concomitant]
     Active Substance: DICLOFENAC SODIUM
  2. XYREM [Suspect]
     Active Substance: SODIUM OXYBATE
     Indication: NARCOLEPSY
     Dosage: ?          OTHER FREQUENCY:ONCE AND THEN 2 HR;?
     Route: 048
     Dates: start: 20191025, end: 20191107
  3. DEPO-PROVERA [Concomitant]
     Active Substance: MEDROXYPROGESTERONE ACETATE
  4. SINGULAIR [Concomitant]
     Active Substance: MONTELUKAST SODIUM
  5. CLARITINE [Concomitant]
     Active Substance: LORATADINE

REACTIONS (6)
  - Cholelithiasis [None]
  - Cholecystitis [None]
  - Weight decreased [None]
  - Hypoaesthesia [None]
  - Pain [None]
  - Dehydration [None]

NARRATIVE: CASE EVENT DATE: 20191108
